FAERS Safety Report 6102662-X (Version None)
Quarter: 2009Q1

REPORT INFORMATION
  Report Type: 
  Country: None (occurrence: None)
  Receive Date: 20090304
  Receipt Date: 20081125
  Transmission Date: 20090719
  Serious: Yes (Other)
  Sender: FDA-Public Use
  Company Number: A0758118A

PATIENT
  Age: 78 Year
  Sex: Male

DRUGS (4)
  1. REQUIP [Suspect]
     Indication: PARKINSON'S DISEASE
     Route: 048
     Dates: start: 20080101
  2. AZILECT [Concomitant]
  3. SINEMET [Concomitant]
  4. OTHER MEDICATIONS [Concomitant]

REACTIONS (2)
  - HALLUCINATION [None]
  - HYPOKINESIA [None]
